FAERS Safety Report 7508817-1 (Version None)
Quarter: 2011Q2

REPORT INFORMATION
  Report Type: 
  Country: None (occurrence: None)
  Receive Date: 20110527
  Receipt Date: 20091204
  Transmission Date: 20111010
  Serious: Yes (Death, Other)
  Sender: FDA-Public Use
  Company Number: US-BAYER-2011-006591

PATIENT
  Age: 42 Year
  Sex: Male
  Weight: 102 kg

DRUGS (19)
  1. ACETYLSALICYLIC ACID SRT [Concomitant]
     Dosage: 325MG DAILY
     Route: 048
  2. HEPARIN [Concomitant]
     Dosage: UNK
     Route: 042
     Dates: start: 20051130
  3. VASOPRESSIN [Concomitant]
     Dosage: UNK
     Route: 042
     Dates: start: 20051130
  4. PLAVIX [Concomitant]
     Dosage: 75MG DAILY
     Route: 048
  5. LIPITOR [Concomitant]
     Dosage: 80MG AT BEDTIME
     Route: 048
  6. NITROGLYCERIN [Concomitant]
     Dosage: UNK
     Route: 042
     Dates: start: 20051130
  7. LASIX [Concomitant]
     Dosage: UNK
     Route: 042
     Dates: start: 20051130
  8. PLASMA [Concomitant]
     Dosage: 20 UNITS
     Dates: start: 20051130
  9. TRASYLOL [Suspect]
     Indication: HEART TRANSPLANT
     Dosage: 200CC LOADING DOSE FOLLOWED BY 50CC/HOUR INFUSION
     Route: 042
     Dates: start: 20051130, end: 20051130
  10. RED BLOOD CELLS [Concomitant]
     Dosage: 8 UNITS
     Dates: start: 20051130
  11. HYDROCHLOROTHIAZIDE [Concomitant]
     Dosage: 25MG DAILY
     Route: 048
  12. COUMADIN [Concomitant]
     Dosage: 7.5MG EVERY MONDAY,WEDNESDAY, AND FRIDAY AND 5MG ALL OTHER DAYS
     Route: 048
  13. PROTAMINE SULFATE [Concomitant]
     Dosage: UNK
     Route: 042
     Dates: start: 20051130
  14. ALTACE [Concomitant]
     Dosage: ALTACE
     Route: 048
  15. ALDACTONE [Concomitant]
     Dosage: 25MG DAILY
     Route: 048
  16. INSULIN [Concomitant]
     Dosage: UNK
     Route: 042
     Dates: start: 20051130
  17. PLATELETS [Concomitant]
     Dosage: 25 UNITS
     Dates: start: 20051130
  18. TRASYLOL [Suspect]
     Indication: VENTRICULAR ASSIST DEVICE INSERTION
  19. COREG [Concomitant]
     Dosage: 25MG TWICE DAILY
     Route: 048

REACTIONS (12)
  - PAIN [None]
  - RENAL FAILURE [None]
  - INJURY [None]
  - FATIGUE [None]
  - FRUSTRATION [None]
  - NIGHTMARE [None]
  - RENAL FAILURE ACUTE [None]
  - INSOMNIA [None]
  - DEATH [None]
  - CARDIAC FAILURE [None]
  - RENAL INJURY [None]
  - HEART TRANSPLANT REJECTION [None]
